FAERS Safety Report 7917250-X (Version None)
Quarter: 2011Q4

REPORT INFORMATION
  Report Type: 
  Country: None (occurrence: None)
  Receive Date: 20111114
  Receipt Date: 20111028
  Transmission Date: 20120403
  Serious: Yes (Hospitalization)
  Sender: FDA-Public Use
  Company Number: 1000024747

PATIENT
  Age: 19 Year
  Sex: Male

DRUGS (6)
  1. RISPERIDONE [Suspect]
  2. BIPERIDEN HYDROCHLORIDE TAB [Suspect]
  3. ESCITALOPRAM OXALATE [Suspect]
  4. OLANZAPINE [Suspect]
  5. LITHIUM CARBONATE [Suspect]
  6. LORAZEPAM [Suspect]

REACTIONS (5)
  - DYSPHAGIA [None]
  - PNEUMOTHORAX [None]
  - NEUROLEPTIC MALIGNANT SYNDROME [None]
  - APHASIA [None]
  - RESPIRATORY DISTRESS [None]
